FAERS Safety Report 7675536-0 (Version None)
Quarter: 2011Q3

REPORT INFORMATION
  Report Type: 
  Country: None (occurrence: None)
  Receive Date: 20110810
  Receipt Date: 20110808
  Transmission Date: 20111222
  Serious: Yes (Hospitalization, Other)
  Sender: FDA-Public Use
  Company Number: US-BAYER-201010486NA

PATIENT
  Age: 24 Year
  Sex: Female

DRUGS (1)
  1. YAZ [Suspect]
     Indication: CONTRACEPTION
     Dosage: UNK
     Route: 048
     Dates: start: 20081101

REACTIONS (5)
  - INJURY [None]
  - FEAR OF DISEASE [None]
  - ABDOMINAL PAIN UPPER [None]
  - PAIN [None]
  - GALLBLADDER DISORDER [None]
